FAERS Safety Report 7005278-6 (Version None)
Quarter: 2010Q3

REPORT INFORMATION
  Report Type: 
  Country: None (occurrence: None)
  Receive Date: 20100917
  Receipt Date: 20100907
  Transmission Date: 20110219
  Serious: Yes (Hospitalization)
  Sender: FDA-Public Use
  Company Number: 018513

PATIENT
  Sex: Male

DRUGS (3)
  1. KEPPRA [Suspect]
     Indication: MYOCLONIC EPILEPSY
     Dosage: (750 MG ORAL)
     Route: 048
     Dates: start: 20070901, end: 20071201
  2. VALPROAT [Concomitant]
  3. ETHOSUXIMIDE [Concomitant]

REACTIONS (4)
  - CONFUSIONAL STATE [None]
  - ELECTROENCEPHALOGRAM ABNORMAL [None]
  - GAIT DISTURBANCE [None]
  - PSYCHOMOTOR HYPERACTIVITY [None]
